FAERS Safety Report 8231940-3 (Version None)
Quarter: 2012Q1

REPORT INFORMATION
  Report Type: 
  Country: None (occurrence: None)
  Receive Date: 20120320
  Receipt Date: 20120309
  Transmission Date: 20120608
  Serious: Yes (Other)
  Sender: FDA-Public Use
  Company Number: PD 159

PATIENT
  Sex: Female

DRUGS (6)
  1. BENZODIAZEPINES + VOLPROATE + PHENYTOIN [Concomitant]
  2. LEVEITRACETAM (STRENGTH/MFR/LABELER UNKNOWN) [Suspect]
     Indication: STATUS EPILEPTICUS
     Dosage: 2000 MG/DAY IV
     Route: 042
  3. BENZODIAZEPINES [Concomitant]
  4. BENZODIAZEPINES + PHENYTOIN [Concomitant]
  5. BENZODIAZEPINES + VOLPROATE [Concomitant]
  6. VOLPROATE [Concomitant]

REACTIONS (2)
  - CONVULSION [None]
  - THROMBOCYTOPENIA [None]
